FAERS Safety Report 6479061-4 (Version None)
Quarter: 2009Q4

REPORT INFORMATION
  Report Type: 
  Country: None (occurrence: None)
  Receive Date: 20091207
  Receipt Date: 20090211
  Transmission Date: 20100525
  Serious: No
  Sender: FDA-Public Use
  Company Number: US-AMGEN-KDL333451

PATIENT
  Sex: Female
  Weight: 64.5 kg

DRUGS (4)
  1. ENBREL [Suspect]
     Indication: ANKYLOSING SPONDYLITIS
     Route: 058
     Dates: start: 20080206, end: 20080709
  2. AVAPRO [Concomitant]
  3. YASMIN [Concomitant]
  4. CELEBREX [Concomitant]

REACTIONS (2)
  - MUSCLE TWITCHING [None]
  - URTICARIA [None]
